FAERS Safety Report 14399991 (Version 2)
Quarter: 2018Q1

REPORT INFORMATION
  Report Type: Spontaneous
  Country: US (occurrence: US)
  Receive Date: 20180117
  Receipt Date: 20180309
  Transmission Date: 20180509
  Serious: Yes (Hospitalization)
  Sender: FDA-Public Use
  Company Number: US-JNJFOC-20171237453

PATIENT
  Age: 26 Year
  Sex: Female

DRUGS (2)
  1. XARELTO [Suspect]
     Active Substance: RIVAROXABAN
     Indication: BLOOD DISORDER
     Route: 048
     Dates: start: 20161230, end: 20170112
  2. XARELTO [Suspect]
     Active Substance: RIVAROXABAN
     Indication: PLASMINOGEN ACTIVATOR INHIBITOR POLYMORPHISM
     Route: 048
     Dates: start: 20161230, end: 20170112

REACTIONS (3)
  - Vaginal haemorrhage [Unknown]
  - Off label use [Unknown]
  - Product use in unapproved indication [Unknown]

NARRATIVE: CASE EVENT DATE: 20161230
